FAERS Safety Report 15950609 (Version 2)
Quarter: 2019Q3

REPORT INFORMATION
  Report Type: Spontaneous
  Country: US (occurrence: US)
  Receive Date: 20190212
  Receipt Date: 20190830
  Transmission Date: 20191004
  Serious: Yes (Other)
  Sender: FDA-Public Use
  Company Number: US-ASTRAZENECA-2019SE22293

PATIENT
  Sex: Male

DRUGS (1)
  1. FARXIGA [Suspect]
     Active Substance: DAPAGLIFLOZIN PROPANEDIOL
     Indication: PROPHYLAXIS
     Dosage: 10.0MG UNKNOWN
     Route: 048

REACTIONS (2)
  - Abdominal pain [Recovered/Resolved]
  - Pancreatitis [Recovered/Resolved]
